FAERS Safety Report 18768335 (Version 1)
Quarter: 2021Q1

REPORT INFORMATION
  Report Type: Spontaneous
  Country: DE (occurrence: DE)
  Receive Date: 20210121
  Receipt Date: 20210121
  Transmission Date: 20210419
  Serious: Yes (Other)
  Sender: FDA-Public Use
  Company Number: DE-SUN PHARMACEUTICAL INDUSTRIES LTD-2021RR-276496

PATIENT
  Sex: Male

DRUGS (1)
  1. OLANZAPIN BASICS 10 MG TABLETTEN [Suspect]
     Active Substance: OLANZAPINE
     Indication: POST-TRAUMATIC STRESS DISORDER
     Dosage: UNK
     Route: 065

REACTIONS (6)
  - Thinking abnormal [Unknown]
  - Heart rate increased [Unknown]
  - Suicidal ideation [Unknown]
  - Condition aggravated [Unknown]
  - Somnolence [Unknown]
  - Blood pressure increased [Unknown]
